FAERS Safety Report 16751655 (Version 2)
Quarter: 2019Q4

REPORT INFORMATION
  Report Type: Spontaneous
  Country: CN (occurrence: CN)
  Receive Date: 20190828
  Receipt Date: 20191022
  Transmission Date: 20200122
  Serious: Yes (Hospitalization)
  Sender: FDA-Public Use
  Company Number: CN-PFIZER INC-2019365889

PATIENT
  Age: 76 Year
  Sex: Female
  Weight: 47.5 kg

DRUGS (6)
  1. ZOLOFT [Suspect]
     Active Substance: SERTRALINE HYDROCHLORIDE
     Indication: DEPRESSION
     Dosage: 25 MG, 1X/DAY
     Route: 048
     Dates: start: 20190710, end: 20190712
  2. VINPOCETINE [Suspect]
     Active Substance: VINPOCETINE
     Indication: CEREBROVASCULAR INSUFFICIENCY
     Dosage: 20 MG, 1X/DAY
     Route: 041
     Dates: start: 20190704, end: 20190715
  3. SODIUM CHLORIDE. [Concomitant]
     Active Substance: SODIUM CHLORIDE
     Indication: CEREBROVASCULAR INSUFFICIENCY
     Dosage: 250 ML, 1X/DAY
     Route: 041
     Dates: start: 20190704, end: 20190715
  4. ZOLOFT [Suspect]
     Active Substance: SERTRALINE HYDROCHLORIDE
     Dosage: 25 MG, 1X/DAY
     Route: 048
     Dates: start: 20190717, end: 20190717
  5. PROZAC [Suspect]
     Active Substance: FLUOXETINE HYDROCHLORIDE
     Indication: DEPRESSION
     Dosage: 20 MG, 1X/DAY
     Route: 048
     Dates: start: 20190718, end: 20190722
  6. ZOLOFT [Suspect]
     Active Substance: SERTRALINE HYDROCHLORIDE
     Dosage: 50 MG, 1X/DAY
     Route: 048
     Dates: start: 20190713, end: 20190716

REACTIONS (7)
  - Nausea [Unknown]
  - Hypochloraemia [Recovered/Resolved]
  - Therapeutic product effect incomplete [Unknown]
  - Blood potassium decreased [Recovered/Resolved]
  - Vomiting [Unknown]
  - Blood sodium decreased [Recovered/Resolved]
  - Gastrointestinal disorder [Unknown]

NARRATIVE: CASE EVENT DATE: 201907
